FAERS Safety Report 9497145 (Version 2)
Quarter: 2013Q3

REPORT INFORMATION
  Report Type: Spontaneous
  Country: US (occurrence: US)
  Receive Date: 20130904
  Receipt Date: 20130904
  Transmission Date: 20140515
  Serious: No
  Sender: FDA-Public Use
  Company Number: US-AMGEN-USASP2013053167

PATIENT
  Age: 63 Year
  Sex: Female
  Weight: 69.84 kg

DRUGS (11)
  1. ENBREL [Suspect]
     Indication: RHEUMATOID ARTHRITIS
     Dosage: 50 MG, ONCE A WEEK
     Route: 058
     Dates: start: 20130509
  2. COD LIVER OIL [Concomitant]
     Dosage: ONE TO TWO PO QD
     Route: 048
  3. FISH OIL [Concomitant]
     Dosage: 1200 MG ONE TO TWO PO QD
     Route: 048
  4. FOLIC ACID [Concomitant]
     Dosage: 1 MG ONE PO QD
     Route: 048
  5. HUMIRA [Concomitant]
     Dosage: 40/0.8 ML UNK MG, Q2WK
     Route: 058
  6. MULTIVITAMINS, PLAIN [Concomitant]
     Dosage: UNK UNK, QD
     Route: 048
  7. PLAQUENIL                          /00072602/ [Concomitant]
     Dosage: 200 MG ONE AND HALF PILLS DAILY, QD
     Route: 048
  8. RELAFEN [Concomitant]
     Dosage: 500 MG ONE PO, BID
     Route: 048
  9. VITAMIN D3 [Concomitant]
     Dosage: 2000 UNIT, UNK
  10. ZOLOFT [Concomitant]
     Dosage: 25 MG ONE PO, QD
     Route: 048
  11. CALCIUM 600+D                      /00944201/ [Concomitant]
     Dosage: 600-400 UNIT ONE PO BID
     Route: 048

REACTIONS (2)
  - Cough [Recovered/Resolved]
  - Nasopharyngitis [Recovered/Resolved]
